FAERS Safety Report 9047690 (Version 1)
Quarter: 2013Q1

REPORT INFORMATION
  Report Type: Spontaneous
  Country: US (occurrence: US)
  Receive Date: 20130204
  Receipt Date: 20130204
  Transmission Date: 20140127
  Serious: No
  Sender: FDA-Public Use
  Company Number: US-AMGEN-USASP2013004273

PATIENT
  Age: 64 Year
  Sex: Female

DRUGS (2)
  1. ENBREL [Suspect]
     Indication: RHEUMATOID ARTHRITIS
     Dosage: 50 MG, QWK
     Route: 058
     Dates: start: 20070301, end: 20130101
  2. ENBREL [Suspect]

REACTIONS (3)
  - Tooth extraction [Recovered/Resolved]
  - Arthralgia [Not Recovered/Not Resolved]
  - Injection site pain [Not Recovered/Not Resolved]
